FAERS Safety Report 20503327 (Version 1)
Quarter: 2022Q1

REPORT INFORMATION
  Report Type: Spontaneous
  Country: US (occurrence: None)
  Receive Date: 20220220
  Receipt Date: 20220220
  Transmission Date: 20220424
  Serious: Yes (Hospitalization, Disabling)
  Sender: FDA-Public Use
  Company Number: None

PATIENT
  Age: 78 Year
  Sex: Male
  Weight: 92.25 kg

DRUGS (15)
  1. KEYTRUDA [Suspect]
     Active Substance: PEMBROLIZUMAB
     Indication: Small cell lung cancer
     Route: 042
     Dates: start: 20211118, end: 20211118
  2. Flomax .4mg [Concomitant]
  3. STIOLTO RESPIMAT [Concomitant]
     Active Substance: OLODATEROL HYDROCHLORIDE\TIOTROPIUM BROMIDE MONOHYDRATE
  4. Albuteral 2.5 nebulizer solution [Concomitant]
  5. Singular 10mg [Concomitant]
  6. Bystolic 2.5mg [Concomitant]
  7. Lasix 20mg [Concomitant]
  8. ASPIRIN [Concomitant]
     Active Substance: ASPIRIN
  9. VALIUM [Concomitant]
     Active Substance: DIAZEPAM
  10. zithromax 3 time a week [Concomitant]
  11. VITAMIN D3 [Concomitant]
     Active Substance: CHOLECALCIFEROL
  12. VITAMIN C [Concomitant]
     Active Substance: ASCORBIC ACID
  13. PROSTATE PRO [Concomitant]
  14. TYLENOL [Concomitant]
     Active Substance: ACETAMINOPHEN
  15. MOTRIN [Concomitant]
     Active Substance: IBUPROFEN

REACTIONS (6)
  - Headache [None]
  - Gait disturbance [None]
  - Fall [None]
  - Peripheral swelling [None]
  - Peripheral swelling [None]
  - Dysstasia [None]

NARRATIVE: CASE EVENT DATE: 20211125
